FAERS Safety Report 6755548-1 (Version None)
Quarter: 2010Q2

REPORT INFORMATION
  Report Type: 
  Country: None (occurrence: None)
  Receive Date: 20100604
  Receipt Date: 20100604
  Transmission Date: 20101027
  Serious: Yes (Hospitalization, Other)
  Sender: FDA-Public Use
  Company Number: US-JNJFOC-20100501371

PATIENT
  Sex: Male

DRUGS (6)
  1. LEVAQUIN [Suspect]
     Indication: NAUSEA
     Route: 048
  2. LEVAQUIN [Suspect]
     Indication: EAR PAIN
     Route: 048
  3. LEVAQUIN [Suspect]
     Indication: PNEUMONIA
     Route: 048
  4. LEVAQUIN [Suspect]
     Indication: LUNG INFECTION
     Route: 048
  5. PREDNISONE TAB [Suspect]
     Indication: STEROID THERAPY
     Route: 065
  6. UNSPECIFIED NSAIDS [Suspect]
     Indication: DRUG USE FOR UNKNOWN INDICATION

REACTIONS (9)
  - DRUG INEFFECTIVE [None]
  - HAEMATURIA [None]
  - JOINT INJURY [None]
  - MENTAL DISORDER [None]
  - MUSCULOSKELETAL PAIN [None]
  - RENAL FAILURE ACUTE [None]
  - TENDON DISORDER [None]
  - TENDONITIS [None]
  - TUBULOINTERSTITIAL NEPHRITIS [None]
